FAERS Safety Report 9379983 (Version 1)
Quarter: 2013Q3

REPORT INFORMATION
  Report Type: Spontaneous
  Country: US (occurrence: None)
  Receive Date: 20130701
  Receipt Date: 20130701
  Transmission Date: 20140515
  Serious: Yes (Other)
  Sender: FDA-Public Use
  Company Number: None

PATIENT
  Age: 19 Year
  Sex: Male

DRUGS (1)
  1. HUMIRA (ABBOTT) [Suspect]
     Indication: CROHN^S DISEASE
     Dosage: 40 MG EVERY 2 WEES SUB Q
     Route: 058
     Dates: start: 20130315

REACTIONS (1)
  - Fatigue [None]
